FAERS Safety Report 4868692-0 (Version None)
Quarter: 2005Q4

REPORT INFORMATION
  Report Type: 
  Country: None (occurrence: None)
  Receive Date: 20051223
  Receipt Date: 20051212
  Transmission Date: 20060501
  Serious: Yes (Other)
  Sender: FDA-Public Use
  Company Number: 2005089302

PATIENT
  Age: 53 Year
  Sex: Male
  Weight: 112.4921 kg

DRUGS (3)
  1. VIAGRA [Suspect]
     Indication: ERECTILE DYSFUNCTION
     Dosage: 100 MG (100 MG, 1 AS NECESSARY), ORAL
     Route: 048
     Dates: start: 20010430, end: 20040101
  2. NORVASC [Concomitant]
  3. TOPROL-XL [Concomitant]

REACTIONS (10)
  - ALANINE AMINOTRANSFERASE INCREASED [None]
  - ASPARTATE AMINOTRANSFERASE INCREASED [None]
  - BLINDNESS UNILATERAL [None]
  - BLOOD CREATINE INCREASED [None]
  - BLOOD PRESSURE INADEQUATELY CONTROLLED [None]
  - BLOOD UREA INCREASED [None]
  - ERECTILE DYSFUNCTION [None]
  - OPTIC ISCHAEMIC NEUROPATHY [None]
  - OPTIC NERVE INJURY [None]
  - PAPILLOEDEMA [None]
